FAERS Safety Report 13930992 (Version 3)
Quarter: 2017Q3

REPORT INFORMATION
  Report Type: Report from Study
  Country: None (occurrence: US)
  Receive Date: 20170902
  Receipt Date: 20170927
  Transmission Date: 20171127
  Serious: Yes (Other)
  Sender: FDA-Public Use
  Company Number: US-VIFOR (INTERNATIONAL) INC.-VIT-2017-08903

PATIENT
  Age: 52 Year
  Sex: Male
  Weight: 74.91 kg

DRUGS (4)
  1. METOPROLOL. [Concomitant]
     Active Substance: METOPROLOL
  2. LONG ACTING INSULIN [Concomitant]
     Active Substance: INSULIN NOS
     Dosage: 12UNITS AT NIGHT
  3. FAST ACTING INSULIN [Concomitant]
     Dosage: 5, 6, 10 UNITS MORNING, AFTERNOON AND NIGHT DAILY
  4. VELTASSA [Suspect]
     Active Substance: PATIROMER
     Indication: HYPERKALAEMIA
     Route: 048
     Dates: start: 201703, end: 20170811

REACTIONS (3)
  - Clostridium difficile infection [Recovered/Resolved]
  - Dehydration [Recovered/Resolved]
  - Blood potassium decreased [Recovered/Resolved]

NARRATIVE: CASE EVENT DATE: 201707
